FAERS Safety Report 23873949 (Version 1)
Quarter: 2024Q2

REPORT INFORMATION
  Report Type: Spontaneous
  Country: US (occurrence: None)
  Receive Date: 20240517
  Receipt Date: 20240517
  Transmission Date: 20240716
  Serious: Yes (Hospitalization)
  Sender: FDA-Public Use
  Company Number: None

PATIENT
  Age: 55 Year
  Sex: Female
  Weight: 81.45 kg

DRUGS (1)
  1. ZEPBOUND [Suspect]
     Active Substance: TIRZEPATIDE
     Indication: Obesity
     Dosage: OTHER FREQUENCY : 1 INJECTION ONCE A;?
     Route: 058
     Dates: start: 20240505, end: 20240505

REACTIONS (9)
  - Malaise [None]
  - Vomiting [None]
  - Diarrhoea [None]
  - Headache [None]
  - Dehydration [None]
  - Blood urine present [None]
  - Blood test abnormal [None]
  - Urine analysis abnormal [None]
  - Fatigue [None]

NARRATIVE: CASE EVENT DATE: 20240505
